FAERS Safety Report 23276933 (Version 1)
Quarter: 2023Q4

REPORT INFORMATION
  Report Type: Spontaneous
  Country: RU (occurrence: RU)
  Receive Date: 20231208
  Receipt Date: 20231208
  Transmission Date: 20240110
  Serious: Yes (Hospitalization)
  Sender: FDA-Public Use
  Company Number: RU-drreddys-LIT/RUS/23/0188092

PATIENT
  Age: 84 Year
  Sex: Male

DRUGS (7)
  1. TERBINAFINE [Suspect]
     Active Substance: TERBINAFINE
     Indication: Dermatitis
     Route: 048
  2. TERBINAFINE [Suspect]
     Active Substance: TERBINAFINE
     Indication: Dermatitis
  3. CEFTRIAXONE [Suspect]
     Active Substance: CEFTRIAXONE\CEFTRIAXONE SODIUM
     Indication: Dermatitis
  4. LORATADINE [Suspect]
     Active Substance: LORATADINE
     Indication: Dermatitis
     Route: 048
  5. ZINC [Suspect]
     Active Substance: PYRITHIONE ZINC\ZINC\ZINC CHLORIDE
     Indication: Dermatitis
  6. OXYTETRACYCLINE HYDROCHLORIDE [Suspect]
     Active Substance: OXYTETRACYCLINE HYDROCHLORIDE
     Indication: Dermatitis
  7. HYDROCORTISONE ACETATE [Suspect]
     Active Substance: HYDROCORTISONE ACETATE
     Indication: Dermatitis

REACTIONS (3)
  - Rash [Recovered/Resolved]
  - Dermatitis contact [Recovered/Resolved]
  - Therapeutic product effect incomplete [Unknown]
